FAERS Safety Report 7649376-2 (Version None)
Quarter: 2011Q3

REPORT INFORMATION
  Report Type: 
  Country: None (occurrence: None)
  Receive Date: 20110721
  Receipt Date: 20110719
  Transmission Date: 20111222
  Serious: Yes (Other)
  Sender: FDA-Public Use
  Company Number: 2011028682

PATIENT
  Age: 65 Year
  Sex: Female
  Weight: 74.8435 kg

DRUGS (18)
  1. CALCIUM (CALCIUM) [Concomitant]
  2. XYZAL [Concomitant]
  3. ROPINIROLE (ROPIRINOLE) [Concomitant]
  4. HIZENTRA [Suspect]
     Indication: IMMUNODEFICIENCY COMMON VARIABLE
     Dosage: 11 G 1X/WEEK, INFUSED 55ML VIA 4 SITES OVER 1 HR 13MIN, SUBCUTANEOUS
     Route: 058
     Dates: start: 20110329
  5. HIZENTRA [Suspect]
     Indication: IMMUNODEFICIENCY COMMON VARIABLE
     Dosage: 11 G 1X/WEEK, INFUSED 55ML VIA 4 SITES OVER 1 HR 13MIN, SUBCUTANEOUS
     Route: 058
     Dates: start: 20110510
  6. HIZENTRA [Suspect]
  7. PRILOSEC [Concomitant]
  8. LEVOTHYROXINE SODIUM [Concomitant]
  9. HIZENTRA [Suspect]
  10. MEDROL [Concomitant]
  11. SINGULAIR [Concomitant]
  12. MULTIVITAMIN (DAILY MULTIVITAMIN) [Concomitant]
  13. OMNARIS (CICLESONIDE) [Concomitant]
  14. SERTRALINE HYDROCHLORIDE [Concomitant]
  15. HIZENTRA [Suspect]
  16. HIZENTRA [Suspect]
  17. SPIRONOLACTONE [Concomitant]
  18. MUCINEX [Concomitant]

REACTIONS (7)
  - ERYTHEMA [None]
  - URINARY TRACT INFECTION [None]
  - INFUSION [None]
  - INFUSION RELATED REACTION [None]
  - PAIN [None]
  - PRURITUS [None]
  - OEDEMA [None]
